FAERS Safety Report 6985646-9 (Version None)
Quarter: 2010Q3

REPORT INFORMATION
  Report Type: 
  Country: None (occurrence: None)
  Receive Date: 20100915
  Receipt Date: 20100914
  Transmission Date: 20110219
  Serious: Yes (Life-Threatening, Hospitalization)
  Sender: FDA-Public Use
  Company Number: GXKR2009DE05159

PATIENT
  Age: 78 Year
  Sex: Male
  Weight: 75 kg

DRUGS (8)
  1. FALITHROM (NGX) [Suspect]
     Indication: ATRIAL FIBRILLATION
     Dosage: UNK
     Route: 048
     Dates: start: 20070105, end: 20080530
  2. PRAVASTATIN [Concomitant]
     Indication: DYSLIPIDAEMIA
     Dosage: 40 MG, QD
     Route: 048
     Dates: start: 20070105
  3. DIGITOXIN [Concomitant]
     Indication: TACHYARRHYTHMIA
     Dosage: 0.07 MG, QD
     Route: 048
     Dates: start: 20070105
  4. DIOVANE [Concomitant]
     Indication: HYPERTENSION
     Dosage: 80 MG, BID
     Route: 048
     Dates: start: 20070105
  5. HYDROCHLOROTHIAZIDE [Concomitant]
     Indication: HYPERTENSION
     Dosage: 12.5 MG, QD
     Route: 048
     Dates: start: 20070105
  6. MOLSIDOMINE [Concomitant]
     Indication: CORONARY ARTERY DISEASE
     Dosage: UNK
     Route: 048
     Dates: start: 20070105
  7. NEBIVOLOL HCL [Concomitant]
     Indication: HYPERTENSION
     Dosage: 2.5 MG, QD
     Route: 048
     Dates: start: 20070105
  8. TOREM [Concomitant]
     Indication: HYPERTENSION
     Dosage: 10 MG, BID
     Route: 048
     Dates: start: 20070105

REACTIONS (1)
  - GASTROINTESTINAL HAEMORRHAGE [None]
